FAERS Safety Report 10664694 (Version 2)
Quarter: 2014Q4

REPORT INFORMATION
  Report Type: Spontaneous
  Country: BR (occurrence: BR)
  Receive Date: 20141219
  Receipt Date: 20141219
  Transmission Date: 20150529
  Serious: Yes (Other)
  Sender: FDA-Public Use
  Company Number: BR-EMD SERONO-7137383

PATIENT
  Age: 52 Year
  Sex: Female

DRUGS (1)
  1. REBIF [Suspect]
     Active Substance: INTERFERON BETA-1A
     Indication: SECONDARY PROGRESSIVE MULTIPLE SCLEROSIS
     Dates: start: 20041206

REACTIONS (6)
  - Nephrolithiasis [Unknown]
  - Off label use [Unknown]
  - Escherichia urinary tract infection [Not Recovered/Not Resolved]
  - Renal cyst [Unknown]
  - Menorrhagia [Unknown]
  - Urinary incontinence [Not Recovered/Not Resolved]

NARRATIVE: CASE EVENT DATE: 201201
